FAERS Safety Report 20828447 (Version 2)
Quarter: 2022Q2

REPORT INFORMATION
  Report Type: Spontaneous
  Country: US (occurrence: US)
  Receive Date: 20220513
  Receipt Date: 20220630
  Transmission Date: 20220721
  Serious: No
  Sender: FDA-Public Use
  Company Number: US-SA-SAC20220505000198

PATIENT
  Age: 7 Year
  Sex: Male

DRUGS (2)
  1. DUPIXENT [Suspect]
     Active Substance: DUPILUMAB
     Indication: Molluscum contagiosum
     Dosage: 400 MG, 1X
     Route: 058
     Dates: start: 20220509
  2. DUPIXENT [Suspect]
     Active Substance: DUPILUMAB
     Indication: Dermatitis allergic
     Dosage: 200 MG, QOW
     Route: 058
     Dates: start: 2022

REACTIONS (8)
  - Injection site pain [Unknown]
  - Dermatitis allergic [Unknown]
  - Erythema [Unknown]
  - Condition aggravated [Unknown]
  - Extra dose administered [Unknown]
  - Product use issue [Unknown]
  - Product use in unapproved indication [Unknown]
  - Off label use of device [Unknown]

NARRATIVE: CASE EVENT DATE: 20220101
